FAERS Safety Report 7352135-1 (Version None)
Quarter: 2011Q1

REPORT INFORMATION
  Report Type: 
  Country: None (occurrence: None)
  Receive Date: 20110304
  Receipt Date: 20090818
  Transmission Date: 20110831
  Serious: Yes (Disabling)
  Sender: FDA-Public Use
  Company Number: UK-2009-00263

PATIENT

DRUGS (1)
  1. SIMVASTATIN [Suspect]
     Indication: HYPERCHOLESTEROLAEMIA
     Dosage: 20 MG (20 MG,UNK), ORAL
     Route: 048
     Dates: start: 20050301, end: 20090401

REACTIONS (2)
  - SLEEP DISORDER [None]
  - RESTLESSNESS [None]
